FAERS Safety Report 7164439-6 (Version None)
Quarter: 2010Q4

REPORT INFORMATION
  Report Type: 
  Country: None (occurrence: None)
  Receive Date: 20101215
  Receipt Date: 20101207
  Transmission Date: 20110411
  Serious: Yes (Hospitalization)
  Sender: FDA-Public Use
  Company Number: GB-TEVA-259545ISR

PATIENT
  Age: 69 Year
  Sex: Male
  Weight: 96 kg

DRUGS (2)
  1. GABAPENTIN [Suspect]
     Indication: MYELITIS TRANSVERSE
     Route: 048
     Dates: start: 20100705, end: 20101115
  2. GABAPENTIN [Suspect]
     Indication: NEURALGIA

REACTIONS (1)
  - HAEMARTHROSIS [None]
